FAERS Safety Report 24055790 (Version 2)
Quarter: 2024Q3

REPORT INFORMATION
  Report Type: Spontaneous
  Country: PT (occurrence: PT)
  Receive Date: 20240705
  Receipt Date: 20240710
  Transmission Date: 20241016
  Serious: Yes (Death, Other)
  Sender: NOVARTIS
  Company Number: PT-002147023-NVSC2024PT138837

PATIENT
  Age: 45 Year
  Sex: Male

DRUGS (1)
  1. TRAMETINIB [Suspect]
     Active Substance: TRAMETINIB
     Indication: Paraganglion neoplasm
     Dosage: UNK
     Route: 065
     Dates: start: 202206

REACTIONS (3)
  - Paraganglion neoplasm [Fatal]
  - Malignant neoplasm progression [Fatal]
  - Product use in unapproved indication [Unknown]

NARRATIVE: CASE EVENT DATE: 20220801
